FAERS Safety Report 5362901-X (Version None)
Quarter: 2007Q2

REPORT INFORMATION
  Report Type: 
  Country: None (occurrence: None)
  Receive Date: 20070615
  Receipt Date: 20070604
  Transmission Date: 20071010
  Serious: Yes (Death, Other)
  Sender: FDA-Public Use
  Company Number: KADN20070052

PATIENT
  Age: 26 Year
  Sex: Female
  Weight: 68.0396 kg

DRUGS (10)
  1. KADIAN [Suspect]
     Dates: end: 20060915
  2. HYDROMORPHONE HCL [Suspect]
     Dates: end: 20060915
  3. TRAZODONE HCL [Suspect]
     Dates: end: 20060915
  4. FLUOXETINE [Suspect]
     Dates: end: 20060915
  5. DIPHENHYDRAMINE HCL [Suspect]
     Dates: end: 20060915
  6. ACETAMINOPHEN [Suspect]
     Dates: end: 20060915
  7. HYDROXYZINE [Concomitant]
  8. NICOTINE [Concomitant]
  9. CAFFEINE [Concomitant]
  10. ANTIHYPERTENSIVE MEDICATION [Concomitant]

REACTIONS (13)
  - ACCIDENTAL DEATH [None]
  - CEREBROVASCULAR DISORDER [None]
  - DEPRESSION [None]
  - DRUG SCREEN POSITIVE [None]
  - DRUG TOXICITY [None]
  - FEELING ABNORMAL [None]
  - HYPERTENSION [None]
  - IMPRISONMENT [None]
  - INTENTIONAL DRUG MISUSE [None]
  - LEGAL PROBLEM [None]
  - PULMONARY CONGESTION [None]
  - PULMONARY OEDEMA [None]
  - TOXICOLOGIC TEST ABNORMAL [None]
